FAERS Safety Report 24801173 (Version 3)
Quarter: 2025Q1

REPORT INFORMATION
  Report Type: Spontaneous
  Country: US (occurrence: US)
  Receive Date: 20250102
  Receipt Date: 20250122
  Transmission Date: 20250408
  Serious: No
  Sender: VERTEX
  Company Number: US-VERTEX PHARMACEUTICALS-2024-020131

PATIENT
  Age: 2 Year
  Sex: Female

DRUGS (1)
  1. TRIKAFTA [Suspect]
     Active Substance: ELEXACAFTOR\IVACAFTOR\TEZACAFTOR
     Indication: Cystic fibrosis
     Dosage: (ONE PACK TWICE DAILY 80 MG ELEXA/ 40 MG TEZA/ 60 MG IVA AND 59.5 MG IVA)
     Route: 048
     Dates: start: 20241216

REACTIONS (1)
  - Dermatitis diaper [Unknown]

NARRATIVE: CASE EVENT DATE: 20241216
